FAERS Safety Report 4910786-5 (Version None)
Quarter: 2006Q1

REPORT INFORMATION
  Report Type: 
  Country: None (occurrence: None)
  Receive Date: 20060214
  Receipt Date: 20051214
  Transmission Date: 20060701
  Serious: Yes (Death, Hospitalization)
  Sender: FDA-Public Use
  Company Number: JP-AVENTIS-200513809JP

PATIENT
  Age: 78 Year
  Sex: Male
  Weight: 37 kg

DRUGS (6)
  1. TAXOTERE [Suspect]
     Indication: NON-SMALL CELL LUNG CANCER
     Route: 041
     Dates: start: 20030708, end: 20030805
  2. TAXOTERE [Suspect]
     Route: 041
     Dates: start: 20050915
  3. UFT [Suspect]
     Indication: NON-SMALL CELL LUNG CANCER
     Route: 048
     Dates: start: 20031010, end: 20041014
  4. PARAPLATIN [Concomitant]
     Route: 041
     Dates: start: 20030708, end: 20030805
  5. NAVELBINE [Concomitant]
     Indication: NON-SMALL CELL LUNG CANCER
     Route: 041
     Dates: start: 20041021, end: 20041021
  6. NAVELBINE [Concomitant]
     Route: 041
     Dates: start: 20050818, end: 20050818

REACTIONS (4)
  - CEREBRAL HAEMORRHAGE [None]
  - CONVULSION [None]
  - METASTASES TO LUNG [None]
  - NON-SMALL CELL LUNG CANCER [None]
